FAERS Safety Report 5047178-7 (Version None)
Quarter: 2006Q3

REPORT INFORMATION
  Report Type: 
  Country: None (occurrence: None)
  Receive Date: 20060703
  Receipt Date: 20060621
  Transmission Date: 20061208
  Serious: Yes (Other)
  Sender: FDA-Public Use
  Company Number: 2006078449

PATIENT
  Sex: Male

DRUGS (1)
  1. ROGAINE [Suspect]
     Indication: ALOPECIA AREATA
     Dosage: 2 ML OR LESS 2XDAY, TOPICAL
     Route: 061
     Dates: start: 20060101

REACTIONS (6)
  - CAUSTIC INJURY [None]
  - DRY SKIN [None]
  - SKIN DISORDER [None]
  - THERMAL BURN [None]
  - WOUND SECRETION [None]
  - YELLOW SKIN [None]
